FAERS Safety Report 4786784-1 (Version None)
Quarter: 2005Q4

REPORT INFORMATION
  Report Type: 
  Country: None (occurrence: None)
  Receive Date: 20051004
  Receipt Date: 20050922
  Transmission Date: 20060501
  Serious: Yes (Hospitalization)
  Sender: FDA-Public Use
  Company Number: DE-JNJFOC-20050901802

PATIENT
  Sex: Male

DRUGS (2)
  1. TRAMADOL HCL [Suspect]
     Indication: HEADACHE
     Route: 042
  2. TRAMADOL HCL [Suspect]
     Route: 042

REACTIONS (4)
  - EYE PAIN [None]
  - EYELID PTOSIS [None]
  - LACRIMATION INCREASED [None]
  - MIGRAINE WITHOUT AURA [None]
